FAERS Safety Report 21781690 (Version 8)
Quarter: 2023Q4

REPORT INFORMATION
  Report Type: Report from Study
  Country: BR (occurrence: BR)
  Receive Date: 20221227
  Receipt Date: 20231030
  Transmission Date: 20240110
  Serious: Yes (Other)
  Sender: FDA-Public Use
  Company Number: BR-002147023-NVSC2022BR296512

PATIENT
  Age: 71 Year
  Sex: Female

DRUGS (7)
  1. KISQALI [Suspect]
     Active Substance: RIBOCICLIB
     Indication: Breast cancer
     Dosage: 3 DOSAGE FORM
     Route: 065
  2. KISQALI [Suspect]
     Active Substance: RIBOCICLIB
     Dosage: 3 DOSAGE FORM
     Route: 065
  3. KISQALI [Suspect]
     Active Substance: RIBOCICLIB
     Dosage: UNK
     Route: 065
     Dates: start: 202211
  4. KISQALI [Suspect]
     Active Substance: RIBOCICLIB
     Dosage: 3 DOSAGE FORM
     Route: 065
     Dates: start: 202303
  5. KISQALI [Suspect]
     Active Substance: RIBOCICLIB
     Dosage: UNK
     Route: 065
     Dates: start: 20230621
  6. KISQALI [Suspect]
     Active Substance: RIBOCICLIB
     Dosage: 3
     Route: 065
  7. ANASTROZOLE [Suspect]
     Active Substance: ANASTROZOLE
     Indication: Product used for unknown indication
     Dosage: UNK
     Route: 065

REACTIONS (17)
  - Haemorrhage [Unknown]
  - Blood loss anaemia [Unknown]
  - Somnolence [Unknown]
  - Abdominal pain [Recovering/Resolving]
  - Feeling hot [Recovered/Resolved]
  - Food refusal [Not Recovered/Not Resolved]
  - Visual impairment [Unknown]
  - Decreased appetite [Not Recovered/Not Resolved]
  - Blood test abnormal [Unknown]
  - Dizziness [Not Recovered/Not Resolved]
  - Hunger [Not Recovered/Not Resolved]
  - Memory impairment [Unknown]
  - Discomfort [Not Recovered/Not Resolved]
  - Asthenia [Not Recovered/Not Resolved]
  - Anaemia [Recovered/Resolved]
  - Boredom [Not Recovered/Not Resolved]
  - Inappropriate schedule of product administration [Unknown]

NARRATIVE: CASE EVENT DATE: 20230901
